FAERS Safety Report 15127302 (Version 1)
Quarter: 2018Q3

REPORT INFORMATION
  Report Type: Spontaneous
  Country: US (occurrence: US)
  Receive Date: 20180710
  Receipt Date: 20180710
  Transmission Date: 20181010
  Serious: No
  Sender: FDA-Public Use
  Company Number: US-AMNEAL PHARMACEUTICALS-2018AMN00267

PATIENT
  Sex: Male

DRUGS (1)
  1. DESIPRAMINE HYDROCHLORIDE. [Suspect]
     Active Substance: DESIPRAMINE HYDROCHLORIDE
     Indication: ANTIDEPRESSANT THERAPY
     Dosage: 2 TABLETS, 1X/DAY (2X100 MG TAB EVERY NIGHT)
     Route: 048
     Dates: start: 201801

REACTIONS (6)
  - Dizziness [Unknown]
  - Dysphagia [Not Recovered/Not Resolved]
  - Abdominal discomfort [Unknown]
  - Drug hypersensitivity [Unknown]
  - Throat irritation [Not Recovered/Not Resolved]
  - Dry mouth [Not Recovered/Not Resolved]
